FAERS Safety Report 6459006-3 (Version None)
Quarter: 2009Q4

REPORT INFORMATION
  Report Type: 
  Country: None (occurrence: None)
  Receive Date: 20091127
  Receipt Date: 20091123
  Transmission Date: 20100525
  Serious: No
  Sender: FDA-Public Use
  Company Number: CA-BAYER-200936537NA

PATIENT
  Age: 21 Year
  Sex: Female

DRUGS (1)
  1. YASMIN [Suspect]
     Indication: DYSMENORRHOEA
     Dates: start: 20090601

REACTIONS (15)
  - ABDOMINAL PAIN [None]
  - APPETITE DISORDER [None]
  - ASTHENIA [None]
  - BACK PAIN [None]
  - CHEST PAIN [None]
  - DIARRHOEA [None]
  - DYSMENORRHOEA [None]
  - HEADACHE [None]
  - LIBIDO DISORDER [None]
  - MENSTRUAL DISORDER [None]
  - MIGRAINE [None]
  - NAUSEA [None]
  - PAIN [None]
  - VAGINAL HAEMORRHAGE [None]
  - VOMITING [None]
